FAERS Safety Report 10165320 (Version 1)
Quarter: 2014Q2

REPORT INFORMATION
  Report Type: Spontaneous
  Country: US (occurrence: US)
  Receive Date: 20140510
  Receipt Date: 20140510
  Transmission Date: 20141212
  Serious: No
  Sender: FDA-Public Use
  Company Number: US-BRISTOL-MYERS SQUIBB COMPANY-19801836

PATIENT
  Age: 62 Year
  Sex: Male
  Weight: 7.3 kg

DRUGS (4)
  1. BYDUREON [Suspect]
     Indication: TYPE 2 DIABETES MELLITUS
     Dosage: NO OF INJECTIONS:2
     Route: 058
  2. METFORMIN HCL [Suspect]
     Route: 048
  3. JANUVIA [Suspect]
     Route: 048
  4. GLIPIZIDE [Suspect]
     Route: 048

REACTIONS (8)
  - Drug prescribing error [Unknown]
  - Incorrect route of drug administration [Unknown]
  - Anxiety [Unknown]
  - Tremor [Unknown]
  - Underdose [Unknown]
  - Injection site erythema [Unknown]
  - Blood glucose increased [Unknown]
  - Injection site haemorrhage [Unknown]
